FAERS Safety Report 7729893-7 (Version None)
Quarter: 2011Q3

REPORT INFORMATION
  Report Type: 
  Country: None (occurrence: None)
  Receive Date: 20110906
  Receipt Date: 20110830
  Transmission Date: 20111222
  Serious: Yes (Other)
  Sender: FDA-Public Use
  Company Number: IE-ROCHE-800158

PATIENT
  Sex: Female

DRUGS (4)
  1. LAPATINIB [Suspect]
     Route: 065
     Dates: start: 20110118, end: 20110301
  2. TRASTUZUMAB [Suspect]
     Route: 065
     Dates: start: 20110118, end: 20110301
  3. GEMCITABINE [Suspect]
     Route: 065
     Dates: start: 20110316, end: 20110811
  4. TRASTUZUMAB [Suspect]
     Route: 065
     Dates: start: 20110316, end: 20110811

REACTIONS (1)
  - DISEASE PROGRESSION [None]
